FAERS Safety Report 23593464 (Version 1)
Quarter: 2024Q1

REPORT INFORMATION
  Report Type: Spontaneous
  Country: JP (occurrence: JP)
  Receive Date: 20240304
  Receipt Date: 20240304
  Transmission Date: 20240410
  Serious: Yes (Other)
  Sender: FDA-Public Use
  Company Number: JP-GUERBETG_JAPAN-JP-20240023

PATIENT
  Age: 82 Year
  Sex: Male

DRUGS (3)
  1. LIPIODOL [Suspect]
     Active Substance: ETHIODIZED OIL
     Indication: Transcatheter arterial chemoembolisation
     Route: 013
  2. EPIRUBICIN [Concomitant]
     Active Substance: EPIRUBICIN
     Indication: Transcatheter arterial chemoembolisation
     Route: 013
  3. BLINATUMOMAB [Concomitant]
     Active Substance: BLINATUMOMAB
     Indication: Acute lymphocytic leukaemia
     Dosage: 9 ?G PER DAY DURING THE FIRST WEEK OF INDUCTION CYCLE ONE AND 17.5 ?G PER DAY THEREAFTER, BY CONTINU

REACTIONS (2)
  - Ascites [Unknown]
  - Pleural effusion [Unknown]
